FAERS Safety Report 7274945-1 (Version None)
Quarter: 2010Q4

REPORT INFORMATION
  Report Type: 
  Country: None (occurrence: None)
  Receive Date: 20101206
  Receipt Date: 20100826
  Transmission Date: 20110411
  Serious: No
  Sender: FDA-Public Use
  Company Number: 2010SP046594

PATIENT
  Sex: Female

DRUGS (1)
  1. SAPHRIS [Suspect]
     Indication: PRODUCT USED FOR UNKNOWN INDICATION
     Dosage: 5 MG;BID;PO
     Route: 048

REACTIONS (3)
  - FALL [None]
  - INCORRECT ROUTE OF DRUG ADMINISTRATION [None]
  - SOMNOLENCE [None]
